FAERS Safety Report 17437240 (Version 3)
Quarter: 2020Q1

REPORT INFORMATION
  Report Type: Spontaneous
  Country: CN (occurrence: CN)
  Receive Date: 20200219
  Receipt Date: 20200228
  Transmission Date: 20200409
  Serious: Yes (Hospitalization)
  Sender: FDA-Public Use
  Company Number: CN-PFIZER INC-2020070026

PATIENT
  Age: 75 Year
  Sex: Male

DRUGS (7)
  1. PITAVASTATIN CALCIUM [Suspect]
     Active Substance: PITAVASTATIN CALCIUM
     Indication: BLOOD CHOLESTEROL INCREASED
     Dosage: 2 MG, 1X/DAY
     Route: 048
     Dates: start: 20200125, end: 20200206
  2. INDOBUFEN [Concomitant]
     Active Substance: INDOBUFEN
     Indication: PLATELET AGGREGATION INHIBITION
     Dosage: 0.1 G, UNK
     Route: 048
     Dates: start: 20200125, end: 20200206
  3. VFEND [Suspect]
     Active Substance: VORICONAZOLE
     Indication: BRONCHOPULMONARY ASPERGILLOSIS
     Dosage: 200 MG, 2X/DAY
     Route: 048
     Dates: start: 20200203, end: 20200206
  4. EPOCELIN [Suspect]
     Active Substance: CEFTIZOXIME SODIUM
     Indication: PNEUMONIA
     Dosage: 1 G, 2X/DAY
     Route: 041
     Dates: start: 20200125, end: 20200206
  5. YI LI AN [Concomitant]
     Indication: DYSPEPSIA
     Dosage: 10 MG, 1X/DAY
     Route: 048
     Dates: start: 20200125, end: 20200206
  6. SODIUM CHLORIDE. [Concomitant]
     Active Substance: SODIUM CHLORIDE
     Indication: VEHICLE SOLUTION USE
     Dosage: 100 ML, 2X/DAY
     Route: 041
     Dates: start: 20200125, end: 20200206
  7. NICOTINIC ACID [Suspect]
     Active Substance: NIACIN
     Indication: CARDIOVASCULAR DISORDER
     Dosage: 40 MG, 2X/DAY
     Route: 041
     Dates: start: 20200125, end: 20200206

REACTIONS (7)
  - Haemolytic anaemia [Unknown]
  - Back pain [Unknown]
  - Micturition urgency [Recovering/Resolving]
  - Abdominal distension [Recovering/Resolving]
  - Dysuria [Recovering/Resolving]
  - Pollakiuria [Recovering/Resolving]
  - Asthma [Recovering/Resolving]

NARRATIVE: CASE EVENT DATE: 20200204
